FAERS Safety Report 6333280-6 (Version None)
Quarter: 2009Q3

REPORT INFORMATION
  Report Type: 
  Country: None (occurrence: None)
  Receive Date: 20090828
  Receipt Date: 20090818
  Transmission Date: 20100115
  Serious: Yes (Hospitalization, Other)
  Sender: FDA-Public Use
  Company Number: US-WYE-H10654609

PATIENT
  Sex: Female

DRUGS (1)
  1. ROBITUSSIN CF [Suspect]
     Indication: NASOPHARYNGITIS
     Dosage: 2 TEASPOONS (FREQUENCY UNKNOWN)
     Route: 048
     Dates: start: 20040703, end: 20040706

REACTIONS (5)
  - ANXIETY [None]
  - CEREBRAL HAEMORRHAGE [None]
  - CEREBROVASCULAR ACCIDENT [None]
  - GRAND MAL CONVULSION [None]
  - HEART RATE DECREASED [None]
